FAERS Safety Report 5939669-9 (Version None)
Quarter: 2008Q4

REPORT INFORMATION
  Report Type: 
  Country: None (occurrence: None)
  Receive Date: 20081030
  Receipt Date: 20081030
  Transmission Date: 20090506
  Serious: Yes (Other)
  Sender: FDA-Public Use
  Company Number: None

PATIENT
  Age: 32 Year
  Sex: Female
  Weight: 71.6683 kg

DRUGS (1)
  1. MEFLOQUINE HCL [Suspect]
     Indication: MALARIA
     Dosage: 250MG 1 PILL PER WEEK PO
     Route: 048
     Dates: start: 20081004, end: 20081004

REACTIONS (12)
  - ABNORMAL DREAMS [None]
  - CONFUSIONAL STATE [None]
  - DEPRESSION [None]
  - DISTURBANCE IN ATTENTION [None]
  - DIZZINESS [None]
  - FLUSHING [None]
  - HEART RATE INCREASED [None]
  - IMPAIRED DRIVING ABILITY [None]
  - NIGHTMARE [None]
  - NONSPECIFIC REACTION [None]
  - PANIC ATTACK [None]
  - PARANOIA [None]
